FAERS Safety Report 8847219 (Version 1)
Quarter: 2012Q4

REPORT INFORMATION
  Report Type: 
  Country: DE (occurrence: DE)
  Receive Date: 20121018
  Receipt Date: 20121018
  Transmission Date: 20130627
  Serious: Yes (Other)
  Sender: FDA-Public Use
  Company Number: DE-JNJFOC-20121009031

PATIENT

DRUGS (2)
  1. REGAINE [Suspect]
     Route: 061
  2. REGAINE [Suspect]
     Indication: ALOPECIA
     Route: 061
     Dates: start: 2012, end: 2012

REACTIONS (2)
  - Dyspnoea [Unknown]
  - T-lymphocyte count decreased [Unknown]
